FAERS Safety Report 24357524 (Version 1)
Quarter: 2024Q3

REPORT INFORMATION
  Report Type: Spontaneous
  Country: US (occurrence: US)
  Receive Date: 20240924
  Receipt Date: 20240924
  Transmission Date: 20241016
  Serious: No
  Sender: BAYER
  Company Number: US-BAYER-2024A135759

PATIENT
  Age: 34 Year
  Sex: Male

DRUGS (1)
  1. ALEVE [Suspect]
     Active Substance: NAPROXEN SODIUM
     Indication: Pyrexia
     Dosage: 1 TABLET PER 12HOURS TIME
     Route: 048

REACTIONS (1)
  - Drug ineffective for unapproved indication [Recovering/Resolving]
